FAERS Safety Report 15963776 (Version 1)
Quarter: 2019Q1

REPORT INFORMATION
  Report Type: Spontaneous
  Country: US (occurrence: US)
  Receive Date: 20190214
  Receipt Date: 20190214
  Transmission Date: 20190417
  Serious: No
  Sender: FDA-Public Use
  Company Number: US-BAUSCH-BL-2019-003152

PATIENT
  Sex: Female

DRUGS (2)
  1. ARESTIN [Suspect]
     Active Substance: MINOCYCLINE HYDROCHLORIDE
     Indication: PREMEDICATION
     Route: 065
     Dates: start: 20190129
  2. AMOXICILLIN. [Suspect]
     Active Substance: AMOXICILLIN
     Indication: PREMEDICATION
     Route: 065
     Dates: start: 20190129

REACTIONS (3)
  - Oral discomfort [Unknown]
  - Abdominal discomfort [Unknown]
  - Headache [Unknown]

NARRATIVE: CASE EVENT DATE: 2019
